FAERS Safety Report 6484308-4 (Version None)
Quarter: 2009Q4

REPORT INFORMATION
  Report Type: 
  Country: None (occurrence: None)
  Receive Date: 20091209
  Receipt Date: 20091201
  Transmission Date: 20100525
  Serious: Yes (Hospitalization, Other)
  Sender: FDA-Public Use
  Company Number: US-AMGEN-QUU377759

PATIENT
  Sex: Male

DRUGS (1)
  1. SENSIPAR [Suspect]
     Indication: HYPERPARATHYROIDISM SECONDARY

REACTIONS (4)
  - BLOOD PARATHYROID HORMONE ABNORMAL [None]
  - HEPATIC NEOPLASM [None]
  - LIVER DISORDER [None]
  - PANCREATIC DISORDER [None]
